FAERS Safety Report 18117892 (Version 6)
Quarter: 2024Q1

REPORT INFORMATION
  Report Type: Spontaneous
  Country: US (occurrence: US)
  Receive Date: 20200806
  Receipt Date: 20240129
  Transmission Date: 20240410
  Serious: Yes (Death, Hospitalization, Other)
  Sender: FDA-Public Use
  Company Number: US-GILEAD-2020-0486848

PATIENT
  Age: 29 Year
  Sex: Male

DRUGS (30)
  1. TRUVADA [Suspect]
     Active Substance: EMTRICITABINE\TENOFOVIR DISOPROXIL FUMARATE
     Indication: HIV infection
     Dosage: UNK
     Route: 048
     Dates: start: 2007
  2. TRUVADA [Suspect]
     Active Substance: EMTRICITABINE\TENOFOVIR DISOPROXIL FUMARATE
     Dosage: UNK
     Route: 048
     Dates: start: 201111, end: 2015
  3. TRUVADA [Suspect]
     Active Substance: EMTRICITABINE\TENOFOVIR DISOPROXIL FUMARATE
     Dosage: UNK
     Route: 048
     Dates: start: 20111203, end: 20150916
  4. ATRIPLA [Suspect]
     Active Substance: EFAVIRENZ\EMTRICITABINE\TENOFOVIR DISOPROXIL FUMARATE
     Indication: HIV infection
     Dosage: UNK
     Route: 048
     Dates: start: 2010, end: 201112
  5. ALBUTEROL [Concomitant]
     Active Substance: ALBUTEROL
  6. AMOXICILLIN [Concomitant]
     Active Substance: AMOXICILLIN
  7. CEPHALEXIN [Concomitant]
     Active Substance: CEPHALEXIN
  8. DEXAMETHASONE [Concomitant]
     Active Substance: DEXAMETHASONE
  9. DIPHENHYDRAMINE [Concomitant]
     Active Substance: DIPHENHYDRAMINE
  10. FAMOTIDINE [Concomitant]
     Active Substance: FAMOTIDINE
  11. HEPARIN [Concomitant]
     Active Substance: HEPARIN SODIUM
  12. ACETAMINOPHEN\HYDROCODONE [Concomitant]
     Active Substance: ACETAMINOPHEN\HYDROCODONE
  13. LEVOFLOXACIN [Concomitant]
     Active Substance: LEVOFLOXACIN
  14. MAGNESIUM SULFATE [Concomitant]
     Active Substance: MAGNESIUM SULFATE\MAGNESIUM SULFATE HEPTAHYDRATE
  15. MAPAP [Concomitant]
     Active Substance: ACETAMINOPHEN
  16. MORPHINE SULFATE [Concomitant]
     Active Substance: MORPHINE SULFATE
  17. ONDANSETRON [Concomitant]
     Active Substance: ONDANSETRON
  18. SENNA AND DOCUSATE SODIUM [Concomitant]
     Active Substance: DOCUSATE SODIUM\SENNOSIDES
  19. SULFAMETHOXAZOLE [Concomitant]
     Active Substance: SULFAMETHOXAZOLE
  20. VALACYCLOVIR [Concomitant]
     Active Substance: VALACYCLOVIR HYDROCHLORIDE
  21. VANCOMYCIN [Concomitant]
     Active Substance: VANCOMYCIN
  22. ZOSYN [Concomitant]
     Active Substance: PIPERACILLIN SODIUM\TAZOBACTAM SODIUM
  23. TRIAMCINOLONE [Concomitant]
     Active Substance: TRIAMCINOLONE
  24. RANITIDINE HYDROCHLORIDE [Concomitant]
     Active Substance: RANITIDINE HYDROCHLORIDE
  25. PREZISTA [Concomitant]
     Active Substance: DARUNAVIR ETHANOLATE
  26. PREDNISONE [Concomitant]
     Active Substance: PREDNISONE
  27. NORVIR [Concomitant]
     Active Substance: RITONAVIR
  28. IBUPROFEN [Concomitant]
     Active Substance: IBUPROFEN
  29. HYDROXYZINE [Concomitant]
     Active Substance: HYDROXYZINE HYDROCHLORIDE
  30. SUSTIVA [Concomitant]
     Active Substance: EFAVIRENZ

REACTIONS (9)
  - Renal failure [Fatal]
  - Death [Fatal]
  - Tooth loss [Unknown]
  - Bone density decreased [Unknown]
  - Emotional distress [Not Recovered/Not Resolved]
  - Anhedonia [Not Recovered/Not Resolved]
  - Economic problem [Not Recovered/Not Resolved]
  - Anxiety [Not Recovered/Not Resolved]
  - Pain [Not Recovered/Not Resolved]

NARRATIVE: CASE EVENT DATE: 20111201
